FAERS Safety Report 14669643 (Version 1)
Quarter: 2018Q1

REPORT INFORMATION
  Report Type: Spontaneous
  Country: US (occurrence: US)
  Receive Date: 20180321
  Receipt Date: 20180321
  Transmission Date: 20180509
  Serious: No
  Sender: FDA-Public Use
  Company Number: None

PATIENT
  Sex: Female

DRUGS (1)
  1. CAPECITABINE 500MG GENENTECH [Suspect]
     Active Substance: CAPECITABINE
     Indication: BREAST CANCER FEMALE
     Dosage: 1000MG BID 14 DAYS, THEN OFF 7 DAYS PO
     Route: 048
     Dates: start: 20171004, end: 20180228

REACTIONS (1)
  - Drug ineffective [None]
